FAERS Safety Report 5015708-7 (Version None)
Quarter: 2006Q2

REPORT INFORMATION
  Report Type: 
  Country: None (occurrence: None)
  Receive Date: 20060601
  Receipt Date: 20060523
  Transmission Date: 20061013
  Serious: Yes (Death)
  Sender: FDA-Public Use
  Company Number: BE-BRISTOL-MYERS SQUIBB COMPANY-13388913

PATIENT
  Sex: Male

DRUGS (1)
  1. ARIPIPRAZOLE [Suspect]
     Route: 048

REACTIONS (1)
  - COMPLETED SUICIDE [None]
